FAERS Safety Report 14855975 (Version 1)
Quarter: 2018Q2

REPORT INFORMATION
  Report Type: Spontaneous
  Country: US (occurrence: US)
  Receive Date: 20180507
  Receipt Date: 20180507
  Transmission Date: 20180711
  Serious: No
  Sender: FDA-Public Use
  Company Number: US-GLAXOSMITHKLINE-US2018077564

PATIENT
  Sex: Female

DRUGS (5)
  1. BREO ELLIPTA [Suspect]
     Active Substance: FLUTICASONE FUROATE\VILANTEROL TRIFENATATE
     Indication: UPPER RESPIRATORY TRACT INFECTION
     Dosage: 1 PUFF(S), QD
     Route: 055
  2. ATENOLOL. [Concomitant]
     Active Substance: ATENOLOL
  3. LUMIGAN [Concomitant]
     Active Substance: BIMATOPROST
  4. XANAX [Concomitant]
     Active Substance: ALPRAZOLAM
  5. ZOCOR [Concomitant]
     Active Substance: SIMVASTATIN

REACTIONS (2)
  - Product use in unapproved indication [Unknown]
  - Nausea [Unknown]
